FAERS Safety Report 6083913-7 (Version None)
Quarter: 2009Q1

REPORT INFORMATION
  Report Type: 
  Country: None (occurrence: None)
  Receive Date: 20090217
  Receipt Date: 20090205
  Transmission Date: 20090719
  Serious: Yes (Other)
  Sender: FDA-Public Use
  Company Number: 2009US000043

PATIENT
  Age: 47 Year
  Sex: Female
  Weight: 69.8 kg

DRUGS (7)
  1. LEXISCAN [Suspect]
     Indication: SCAN MYOCARDIAL PERFUSION
     Dosage: 0.4 MG/D
     Dates: start: 20090105, end: 20090105
  2. COUMADIN [Concomitant]
  3. LEVOTHYROXINE SODIUM [Concomitant]
  4. NORVASC [Concomitant]
  5. HYDROCHLOROTHIAZIDE [Concomitant]
  6. NAPROXEN [Concomitant]
  7. COLACE (DOCUSATE SODIUM) [Concomitant]

REACTIONS (11)
  - ABDOMINAL PAIN [None]
  - ACTIVATED PARTIAL THROMBOPLASTIN TIME PROLONGED [None]
  - BLOOD PRESSURE INCREASED [None]
  - DYSARTHRIA [None]
  - FACIAL PALSY [None]
  - FLUSHING [None]
  - HYPOAESTHESIA [None]
  - INTERNATIONAL NORMALISED RATIO INCREASED [None]
  - MUSCULAR WEAKNESS [None]
  - PROTHROMBIN TIME PROLONGED [None]
  - SCAN MYOCARDIAL PERFUSION ABNORMAL [None]
